FAERS Safety Report 16992287 (Version 1)
Quarter: 2019Q4

REPORT INFORMATION
  Report Type: Spontaneous
  Country: US (occurrence: US)
  Receive Date: 20190923
  Receipt Date: 20190923
  Transmission Date: 20200122
  Serious: Yes (Hospitalization)
  Sender: FDA-Public Use
  Company Number: None

PATIENT
  Age: 66 Year
  Sex: Male

DRUGS (10)
  1. FENTANYL. [Concomitant]
     Active Substance: FENTANYL
  2. GABAPENTIN. [Concomitant]
     Active Substance: GABAPENTIN
  3. REPATHA [Concomitant]
     Active Substance: EVOLOCUMAB
  4. PRENDISONE [Concomitant]
  5. CCLOBENZAPRINE [Concomitant]
  6. NORCO [Concomitant]
     Active Substance: ACETAMINOPHEN\HYDROCODONE BITARTRATE
  7. MELOXICAM. [Concomitant]
     Active Substance: MELOXICAM
  8. METOPROLOL TART [Concomitant]
     Active Substance: METOPROLOL TARTRATE
     Indication: RHEUMATOID ARTHRITIS
     Route: 058
     Dates: start: 20180508
  9. ZOLOFT [Concomitant]
     Active Substance: SERTRALINE HYDROCHLORIDE
  10. ACTEMRA [Suspect]
     Active Substance: TOCILIZUMAB
     Indication: RHEUMATOID ARTHRITIS
     Route: 058
     Dates: start: 20180508

REACTIONS (5)
  - Dyspnoea [None]
  - Myalgia [None]
  - Myocardial infarction [None]
  - Fatigue [None]
  - Condition aggravated [None]

NARRATIVE: CASE EVENT DATE: 20190831
